FAERS Safety Report 14986621 (Version 2)
Quarter: 2018Q3

REPORT INFORMATION
  Report Type: Spontaneous
  Country: US (occurrence: US)
  Receive Date: 20180608
  Receipt Date: 20180702
  Transmission Date: 20181010
  Serious: No
  Sender: FDA-Public Use
  Company Number: US-CELGENEUS-USA-20180511305

PATIENT
  Sex: Female

DRUGS (1)
  1. REVLIMID [Suspect]
     Active Substance: LENALIDOMIDE
     Indication: PLASMA CELL MYELOMA
     Dosage: 25 MILLIGRAM
     Route: 048
     Dates: start: 20180430

REACTIONS (4)
  - Dysphonia [Not Recovered/Not Resolved]
  - Wrong technique in product usage process [Unknown]
  - Oropharyngeal pain [Not Recovered/Not Resolved]
  - Dysphagia [Not Recovered/Not Resolved]

NARRATIVE: CASE EVENT DATE: 2018
